FAERS Safety Report 12228048 (Version 1)
Quarter: 2016Q1

REPORT INFORMATION
  Report Type: Spontaneous
  Country: US (occurrence: None)
  Receive Date: 20160330
  Receipt Date: 20160330
  Transmission Date: 20160526
  Serious: No
  Sender: FDA-Public Use
  Company Number: None

PATIENT
  Age: 28 Year
  Sex: Female
  Weight: 63.5 kg

DRUGS (1)
  1. IMPLANON [Suspect]
     Active Substance: ETONOGESTREL
     Dates: start: 20150311, end: 20151007

REACTIONS (10)
  - Migraine [None]
  - Menstruation irregular [None]
  - Pain [None]
  - Vulvovaginal dryness [None]
  - Therapy cessation [None]
  - Libido disorder [None]
  - Haemorrhage [None]
  - Infertility female [None]
  - Condition aggravated [None]
  - Menorrhagia [None]

NARRATIVE: CASE EVENT DATE: 20151006
